FAERS Safety Report 23443132 (Version 1)
Quarter: 2024Q1

REPORT INFORMATION
  Report Type: Report from Study
  Country: US (occurrence: US)
  Receive Date: 20240125
  Receipt Date: 20240125
  Transmission Date: 20240410
  Serious: Yes (Other)
  Sender: FDA-Public Use
  Company Number: US-INCYTE CORPORATION-2024IN000759

PATIENT

DRUGS (3)
  1. JAKAFI [Suspect]
     Active Substance: RUXOLITINIB
     Indication: Myelofibrosis
     Dosage: UNK
     Route: 065
     Dates: end: 202210
  2. JAKAFI [Suspect]
     Active Substance: RUXOLITINIB
     Dosage: UNK
     Route: 065
  3. NAVITOCLAX [Concomitant]
     Active Substance: NAVITOCLAX
     Indication: Product used for unknown indication
     Route: 065

REACTIONS (3)
  - Polycythaemia vera [Unknown]
  - Myelofibrosis [Unknown]
  - Arthritis [Unknown]
